FAERS Safety Report 4575560-0 (Version None)
Quarter: 2005Q1

REPORT INFORMATION
  Report Type: 
  Country: None (occurrence: None)
  Receive Date: 20050209
  Receipt Date: 20050201
  Transmission Date: 20050727
  Serious: Yes (Hospitalization)
  Sender: FDA-Public Use
  Company Number: US-BRISTOL-MYERS SQUIBB COMPANY-12844320

PATIENT
  Age: 80 Year
  Sex: Female
  Weight: 63 kg

DRUGS (9)
  1. PRAVACHOL [Suspect]
     Indication: BLOOD CHOLESTEROL INCREASED
     Dosage: DURATION OF THERAPY: SEVERAL YEARS
     Route: 048
  2. PLAVIX [Concomitant]
     Dosage: THERAPY INTERRUPTED FROM 20-JAN-2005 TO 26-JAN-2005
  3. TRIAMTERENE [Concomitant]
     Dosage: DURATION OF THERAPY: ^A LONG TIME^
     Dates: end: 20040101
  4. ACCUPRIL [Concomitant]
     Dates: start: 20040101
  5. LASIX [Concomitant]
     Dates: start: 20040101
  6. XANAX [Concomitant]
  7. PAXIL [Concomitant]
  8. LISINOPRIL [Concomitant]
     Dates: start: 20050113, end: 20050119
  9. AGRELIN [Concomitant]
     Dates: end: 20050101

REACTIONS (4)
  - CYSTITIS [None]
  - DIASTOLIC DYSFUNCTION [None]
  - PROTEIN URINE [None]
  - PRURITUS [None]
